FAERS Safety Report 6646596-0 (Version None)
Quarter: 2010Q1

REPORT INFORMATION
  Report Type: 
  Country: None (occurrence: None)
  Receive Date: 20100323
  Receipt Date: 20100322
  Transmission Date: 20100710
  Serious: Yes (Death)
  Sender: FDA-Public Use
  Company Number: NL-SANOFI-AVENTIS-2010SA016272

PATIENT
  Age: 58 Year
  Sex: Female
  Weight: 150 kg

DRUGS (5)
  1. DOCETAXEL [Suspect]
     Indication: BREAST CANCER
     Route: 042
     Dates: start: 20100113, end: 20100113
  2. DOCETAXEL [Suspect]
     Route: 042
     Dates: start: 20100224, end: 20100224
  3. CAPECITABINE [Suspect]
     Indication: BREAST CANCER
     Dates: start: 20100113, end: 20100309
  4. FUROSEMIDE [Concomitant]
     Indication: HYPERTENSION
     Route: 048
  5. VALSARTAN [Concomitant]
     Indication: HYPERTENSION
     Route: 048

REACTIONS (2)
  - DEATH [None]
  - DYSPNOEA [None]
